FAERS Safety Report 15277078 (Version 1)
Quarter: 2018Q3

REPORT INFORMATION
  Report Type: Report from Study
  Country: CA (occurrence: CA)
  Receive Date: 20180814
  Receipt Date: 20180814
  Transmission Date: 20181010
  Serious: Yes (Other)
  Sender: FDA-Public Use
  Company Number: CA-JNJFOC-20180703058

PATIENT
  Age: 45 Year
  Sex: Female

DRUGS (3)
  1. VITAMINS C [Concomitant]
  2. ADALAT [Concomitant]
     Active Substance: NIFEDIPINE
     Dosage: STRENGTH = 60 MG
     Route: 048
  3. TREMFYA [Suspect]
     Active Substance: GUSELKUMAB
     Indication: PSORIASIS
     Dosage: STRENGTH = 100 MG
     Route: 058
     Dates: start: 20180510

REACTIONS (3)
  - White blood cell count increased [Unknown]
  - Cellulitis [Recovered/Resolved]
  - Skin infection [Unknown]

NARRATIVE: CASE EVENT DATE: 20180629
